FAERS Safety Report 15695393 (Version 3)
Quarter: 2019Q1

REPORT INFORMATION
  Report Type: Spontaneous
  Country: US (occurrence: US)
  Receive Date: 20181206
  Receipt Date: 20190328
  Transmission Date: 20190417
  Serious: Yes (Death, Hospitalization, Other)
  Sender: FDA-Public Use
  Company Number: US-INCYTE CORPORATION-2018IN012305

PATIENT

DRUGS (1)
  1. JAKAFI [Suspect]
     Active Substance: RUXOLITINIB
     Indication: ACUTE LYMPHOCYTIC LEUKAEMIA
     Dosage: 60 MG, BID
     Route: 048
     Dates: start: 20181016, end: 20190101

REACTIONS (8)
  - Pyrexia [Recovered/Resolved]
  - Product use issue [Unknown]
  - Off label use [Unknown]
  - Drug ineffective for unapproved indication [Unknown]
  - Neutropenia [Unknown]
  - Product administered to patient of inappropriate age [Unknown]
  - Blood sodium abnormal [Recovered/Resolved]
  - Acute lymphocytic leukaemia [Fatal]
